FAERS Safety Report 19816298 (Version 2)
Quarter: 2022Q2

REPORT INFORMATION
  Report Type: Spontaneous
  Country: US (occurrence: US)
  Receive Date: 20210910
  Receipt Date: 20220603
  Transmission Date: 20220721
  Serious: Yes (Other)
  Sender: FDA-Public Use
  Company Number: US-GILEAD-2021-0547340

PATIENT
  Sex: Female
  Weight: 45.351 kg

DRUGS (79)
  1. VIREAD [Suspect]
     Active Substance: TENOFOVIR DISOPROXIL FUMARATE
     Indication: HIV infection
     Dosage: UNK
     Route: 048
     Dates: start: 2011
  2. VIREAD [Suspect]
     Active Substance: TENOFOVIR DISOPROXIL FUMARATE
     Dosage: UNK
     Route: 065
     Dates: start: 201205, end: 201308
  3. COMPLERA [Suspect]
     Active Substance: EMTRICITABINE\RILPIVIRINE HYDROCHLORIDE\TENOFOVIR DISOPROXIL FUMARATE
     Indication: HIV infection
     Dosage: UNK
     Route: 048
     Dates: start: 2011
  4. COMPLERA [Suspect]
     Active Substance: EMTRICITABINE\RILPIVIRINE HYDROCHLORIDE\TENOFOVIR DISOPROXIL FUMARATE
     Dosage: UNK
     Route: 065
     Dates: start: 201107, end: 201205
  5. STRIBILD [Suspect]
     Active Substance: COBICISTAT\ELVITEGRAVIR\EMTRICITABINE\TENOFOVIR DISOPROXIL FUMARATE
     Indication: HIV infection
     Dosage: UNK
     Route: 048
     Dates: start: 2011
  6. STRIBILD [Suspect]
     Active Substance: COBICISTAT\ELVITEGRAVIR\EMTRICITABINE\TENOFOVIR DISOPROXIL FUMARATE
     Dosage: UNK
     Route: 065
     Dates: start: 201307, end: 201311
  7. STRIBILD [Suspect]
     Active Substance: COBICISTAT\ELVITEGRAVIR\EMTRICITABINE\TENOFOVIR DISOPROXIL FUMARATE
     Dosage: UNK
     Route: 065
     Dates: start: 201308, end: 201404
  8. TRUVADA [Suspect]
     Active Substance: EMTRICITABINE\TENOFOVIR DISOPROXIL FUMARATE
     Indication: HIV infection
     Dosage: UNK
     Route: 048
     Dates: start: 2011
  9. TRUVADA [Suspect]
     Active Substance: EMTRICITABINE\TENOFOVIR DISOPROXIL FUMARATE
     Dosage: UNK
     Route: 065
     Dates: start: 201404, end: 201811
  10. BIKTARVY [Concomitant]
     Active Substance: BICTEGRAVIR SODIUM\EMTRICITABINE\TENOFOVIR ALAFENAMIDE FUMARATE
  11. DESCOVY [Concomitant]
     Active Substance: EMTRICITABINE\TENOFOVIR ALAFENAMIDE FUMARATE
  12. SYMTUZA [Concomitant]
     Active Substance: COBICISTAT\DARUNAVIR\EMTRICITABINE\TENOFOVIR ALAFENAMIDE
  13. EDURANT [Concomitant]
     Active Substance: RILPIVIRINE HYDROCHLORIDE
  14. SUSTIVA [Concomitant]
     Active Substance: EFAVIRENZ
  15. SYMFI [Concomitant]
     Active Substance: EFAVIRENZ\LAMIVUDINE\TENOFOVIR DISOPROXIL FUMARATE
  16. TIVICAY [Concomitant]
     Active Substance: DOLUTEGRAVIR SODIUM
  17. QUETIAPINE [Concomitant]
     Active Substance: QUETIAPINE
  18. DRONABINOL [Concomitant]
     Active Substance: DRONABINOL
  19. LAMIVUDINE [Concomitant]
     Active Substance: LAMIVUDINE
  20. METRONIDAZOLE [Concomitant]
     Active Substance: METRONIDAZOLE
  21. MELOXICAM [Concomitant]
     Active Substance: MELOXICAM
  22. ALPRAZOLAM [Concomitant]
     Active Substance: ALPRAZOLAM
  23. ZOLPIDEM TARTRATE [Concomitant]
     Active Substance: ZOLPIDEM TARTRATE
  24. CITALOPRAM [Concomitant]
     Active Substance: CITALOPRAM HYDROBROMIDE
  25. TRAMADOL [Concomitant]
     Active Substance: TRAMADOL
  26. ENDOCET [Concomitant]
     Active Substance: ACETAMINOPHEN\OXYCODONE HYDROCHLORIDE
  27. CALCIUM [Concomitant]
     Active Substance: CALCIUM
  28. PROCHLORPERAZINE [Concomitant]
     Active Substance: PROCHLORPERAZINE
  29. BUPROPION [Concomitant]
     Active Substance: BUPROPION
  30. ENSURE [Concomitant]
     Active Substance: AMINO ACIDS\DEXTROSE\ELECTROLYTES NOS\SOYBEAN OIL\VITAMINS
  31. OXYCODONE [Concomitant]
     Active Substance: OXYCODONE
  32. STRATTERA [Concomitant]
     Active Substance: ATOMOXETINE HYDROCHLORIDE
  33. GABAPENTIN [Concomitant]
     Active Substance: GABAPENTIN
  34. NEXIUM I.V. [Concomitant]
     Active Substance: ESOMEPRAZOLE SODIUM
  35. THERA-M [Concomitant]
  36. CYCLOBENZAPRINE [Concomitant]
     Active Substance: CYCLOBENZAPRINE
  37. CYPROHEPTADINE [Concomitant]
     Active Substance: CYPROHEPTADINE
  38. ESCITALOPRAM [Concomitant]
     Active Substance: ESCITALOPRAM OXALATE
  39. FERROUS SULFATE [Concomitant]
     Active Substance: FERROUS SULFATE
  40. BACITRACIN [Concomitant]
     Active Substance: BACITRACIN
  41. LIDOCAINE [Concomitant]
     Active Substance: LIDOCAINE
  42. CLONAZEPAM [Concomitant]
     Active Substance: CLONAZEPAM
  43. LYRICA [Concomitant]
     Active Substance: PREGABALIN
  44. CIPROFLOXACIN [Concomitant]
     Active Substance: CIPROFLOXACIN
  45. ESOMEPRAZOLE [Concomitant]
     Active Substance: ESOMEPRAZOLE
  46. MEGESTROL [Concomitant]
     Active Substance: MEGESTROL
  47. AZITHROMYCIN [Concomitant]
     Active Substance: AZITHROMYCIN
  48. FOLIC ACID [Concomitant]
     Active Substance: FOLIC ACID
  49. MIRTAZAPINE [Concomitant]
     Active Substance: MIRTAZAPINE
  50. LOPERAMIDE [Concomitant]
     Active Substance: LOPERAMIDE
  51. SERTRALINE [Concomitant]
     Active Substance: SERTRALINE HYDROCHLORIDE
  52. SUBOXONE [Concomitant]
     Active Substance: BUPRENORPHINE HYDROCHLORIDE\NALOXONE HYDROCHLORIDE
  53. DICLOFENAC [Concomitant]
     Active Substance: DICLOFENAC
  54. ROBAFEN [GUAIFENESIN] [Concomitant]
  55. LORATADINE [Concomitant]
     Active Substance: LORATADINE
  56. ROPINIROLE [Concomitant]
     Active Substance: ROPINIROLE
  57. CLONIDINE HYDROCHLORIDE [Concomitant]
     Active Substance: CLONIDINE HYDROCHLORIDE
  58. PRAMIPEXOLE [Concomitant]
     Active Substance: PRAMIPEXOLE
  59. ARIPIPRAZOLE [Concomitant]
     Active Substance: ARIPIPRAZOLE
  60. TYLENOL [Concomitant]
     Active Substance: ACETAMINOPHEN
  61. TIZANIDINE [Concomitant]
     Active Substance: TIZANIDINE
  62. SEROQUEL [Concomitant]
     Active Substance: QUETIAPINE FUMARATE
  63. ZOLOFT [Concomitant]
     Active Substance: SERTRALINE HYDROCHLORIDE
  64. NARCAN [Concomitant]
     Active Substance: NALOXONE HYDROCHLORIDE
  65. CREON [Concomitant]
     Active Substance: PANCRELIPASE AMYLASE\PANCRELIPASE LIPASE\PANCRELIPASE PROTEASE
  66. DICLOFENAC [Concomitant]
     Active Substance: DICLOFENAC
  67. DIETARY SUPPLEMENT [Concomitant]
     Active Substance: DIETARY SUPPLEMENT
  68. AMBIEN [Concomitant]
     Active Substance: ZOLPIDEM TARTRATE
  69. FLUCONAZOLE [Concomitant]
     Active Substance: FLUCONAZOLE
  70. TERCONAZOLE [Concomitant]
     Active Substance: TERCONAZOLE
  71. SULFAMETHOXAZOLE [Concomitant]
     Active Substance: SULFAMETHOXAZOLE
  72. TRIMETHOPRIM [Concomitant]
     Active Substance: TRIMETHOPRIM
  73. TRIAMCINOLONE [Concomitant]
     Active Substance: TRIAMCINOLONE
  74. CHLORHEXIDINE [Concomitant]
     Active Substance: CHLORHEXIDINE
  75. CICLOPIROX [Concomitant]
     Active Substance: CICLOPIROX
  76. CLOTRIMAZOLE [Concomitant]
     Active Substance: CLOTRIMAZOLE
  77. OMEPRAZOLE [Concomitant]
     Active Substance: OMEPRAZOLE
  78. MINERALS\VITAMINS [Concomitant]
     Active Substance: MINERALS\VITAMINS
  79. CIPRODEX [Concomitant]
     Active Substance: CIPROFLOXACIN HYDROCHLORIDE\DEXAMETHASONE

REACTIONS (14)
  - Osteoporosis [Not Recovered/Not Resolved]
  - Multiple fractures [Not Recovered/Not Resolved]
  - Bone density decreased [Unknown]
  - Rib fracture [Unknown]
  - Mobility decreased [Not Recovered/Not Resolved]
  - Gait disturbance [Not Recovered/Not Resolved]
  - Dysstasia [Not Recovered/Not Resolved]
  - Impaired work ability [Not Recovered/Not Resolved]
  - Insomnia [Not Recovered/Not Resolved]
  - Depression [Not Recovered/Not Resolved]
  - Pain [Not Recovered/Not Resolved]
  - Emotional distress [Not Recovered/Not Resolved]
  - Anxiety [Not Recovered/Not Resolved]
  - Anhedonia [Not Recovered/Not Resolved]

NARRATIVE: CASE EVENT DATE: 20190101
